FAERS Safety Report 13660790 (Version 1)
Quarter: 2017Q2

REPORT INFORMATION
  Report Type: Spontaneous
  Country: CO (occurrence: CO)
  Receive Date: 20170616
  Receipt Date: 20170616
  Transmission Date: 20170830
  Serious: Yes (Death, Hospitalization, Other)
  Sender: FDA-Public Use
  Company Number: CO-PFIZER INC-2017047148

PATIENT
  Age: 83 Year
  Sex: Male

DRUGS (5)
  1. XELJANZ [Suspect]
     Active Substance: TOFACITINIB CITRATE
     Dosage: 5 MG, 2X/DAY
     Route: 048
     Dates: start: 20170202, end: 20170204
  2. XELJANZ [Suspect]
     Active Substance: TOFACITINIB CITRATE
     Dosage: 5 MG, 1X/DAY
     Route: 048
  3. XELJANZ [Suspect]
     Active Substance: TOFACITINIB CITRATE
     Dosage: 5 MG, 1X/DAY
     Route: 048
     Dates: start: 20170205, end: 20170212
  4. XELJANZ [Suspect]
     Active Substance: TOFACITINIB CITRATE
     Indication: RHEUMATOID ARTHRITIS
     Dosage: 5 MG, 2X/DAY
     Route: 048
     Dates: start: 20170128
  5. DICLOFENAC [Concomitant]
     Active Substance: DICLOFENAC
     Dosage: 1 DF, DAILY

REACTIONS (11)
  - Prostatic disorder [Fatal]
  - Abdominal discomfort [Recovering/Resolving]
  - Drug ineffective [Unknown]
  - Bacterial infection [Fatal]
  - Sleep disorder [Recovering/Resolving]
  - Myocardial infarction [Fatal]
  - Condition aggravated [Unknown]
  - Intentional product misuse [Unknown]
  - Oesophagitis [Recovering/Resolving]
  - Flatulence [Unknown]
  - Lung disorder [Fatal]

NARRATIVE: CASE EVENT DATE: 20170130
